FAERS Safety Report 9538220 (Version 3)
Quarter: 2013Q4

REPORT INFORMATION
  Report Type: Spontaneous
  Country: AR (occurrence: AR)
  Receive Date: 20130920
  Receipt Date: 20131219
  Transmission Date: 20140711
  Serious: Yes (Other)
  Sender: FDA-Public Use
  Company Number: AR-AMGEN-ARGSP2013065952

PATIENT
  Age: 75 Year
  Sex: Female

DRUGS (1)
  1. ENBREL [Suspect]
     Indication: RHEUMATOID ARTHRITIS
     Dosage: 50 MG, 1 DOSE EVERY 10 DAYS
     Route: 065
     Dates: start: 20080506

REACTIONS (2)
  - Gallbladder disorder [Recovered/Resolved]
  - Stress [Recovered/Resolved]
